FAERS Safety Report 10388892 (Version 1)
Quarter: 2014Q1

REPORT INFORMATION
  Report Type: Spontaneous
  Country: US (occurrence: None)
  Receive Date: 20140306
  Receipt Date: 20140306
  Transmission Date: 20141002
  Serious: Yes (Other)
  Sender: FDA-Public Use
  Company Number: 163-21880-13091365

PATIENT
  Sex: Male
  Weight: 90.7 kg

DRUGS (7)
  1. REVLIMID (LENALIDOMIDE) (10 MILLIGRAM, CAPSULES) [Suspect]
     Indication: PLASMA CELL MYELOMA
     Dosage: 10 MG, 21 IN 28 D, PO
     Route: 048
     Dates: start: 20101220
  2. STEROID [Suspect]
     Indication: PRODUCT USED FOR UNKNOWN INDICATION
  3. DEXAMETHASONE (DEXAMETHASONE) [Concomitant]
  4. ACYCLOVIR (ACICLOVIR) [Concomitant]
  5. METANX (METANX) [Concomitant]
  6. MVI (MVI) [Concomitant]
  7. COUMADIN (WARFARIN SODIUM) [Concomitant]

REACTIONS (4)
  - Cataract [None]
  - Neuropathy peripheral [None]
  - Platelet count decreased [None]
  - Red blood cell count decreased [None]
